FAERS Safety Report 9679242 (Version 2)
Quarter: 2015Q4

REPORT INFORMATION
  Report Type: Report from Study
  Country: US (occurrence: US)
  Receive Date: 20131109
  Receipt Date: 20151110
  Transmission Date: 20160305
  Serious: Yes (Other)
  Sender: FDA-Public Use
  Company Number: US-ROCHE-1296812

PATIENT
  Sex: Female

DRUGS (17)
  1. SYNTHROID [Concomitant]
     Active Substance: LEVOTHYROXINE SODIUM
     Dosage: 150MCG TABLET, 1 PO DAILY
     Route: 048
  2. CALCIUM CARBONATE. [Concomitant]
     Active Substance: CALCIUM CARBONATE
     Dosage: 2 PO BID
     Route: 048
  3. ALLEGRA [Concomitant]
     Active Substance: FEXOFENADINE HYDROCHLORIDE
     Dosage: 1 PO AS DIRECTED
     Route: 048
  4. KLOR-CON M20 [Concomitant]
     Active Substance: POTASSIUM CHLORIDE
     Dosage: TAKE 1 PO DAILY
     Route: 048
  5. VITAMIN B6 [Concomitant]
     Active Substance: PYRIDOXINE HYDROCHLORIDE
     Dosage: 1 PO DAILY
     Route: 048
  6. AVASTIN [Suspect]
     Active Substance: BEVACIZUMAB
     Dosage: RECEIVED ON 02/JAN/2014 AND 17/JAN/2014
     Route: 042
  7. AVASTIN [Suspect]
     Active Substance: BEVACIZUMAB
     Indication: BRAIN NEOPLASM MALIGNANT
     Dosage: AS DIRECTED, ALSO RECEIVED ON 23/SEP/2013
     Route: 042
     Dates: start: 20130909
  8. AVASTIN [Suspect]
     Active Substance: BEVACIZUMAB
     Dosage: 10 MG/KG, RECEIVED ON 22/OCT/2013
     Route: 042
  9. LANTUS SOLOSTAR [Concomitant]
     Active Substance: INSULIN GLARGINE
     Dosage: 26 UNITS AS DIRECTED
     Route: 058
  10. PROMETHAZINE HCL [Concomitant]
     Active Substance: PROMETHAZINE HYDROCHLORIDE
     Indication: NAUSEA
     Dosage: TAKE 1 PO Q4H
     Route: 048
  11. METHYLPREDNISOLONE SODIUM SUCCINATE. [Concomitant]
     Active Substance: METHYLPREDNISOLONE SODIUM SUCCINATE
  12. VITAMIN C [Concomitant]
     Active Substance: ASCORBIC ACID
     Dosage: 1 PO DAILY
     Route: 048
  13. HYDROCORTISONE SUCCINATE [Concomitant]
     Route: 065
  14. FLONASE (UNITED STATES) [Concomitant]
     Dosage: 50MCG SPRAY SUSPENSION TAKE 1 INHALATION ROUTE PRN
     Route: 065
  15. DIPHENHYDRAMINE. [Concomitant]
     Active Substance: DIPHENHYDRAMINE
     Route: 065
  16. ASPIRIN. [Concomitant]
     Active Substance: ASPIRIN
     Dosage: 1 PO DAILY
     Route: 048
  17. DEXAMETHASONE. [Concomitant]
     Active Substance: DEXAMETHASONE
     Dosage: TAKE 1 TABLET BY MOUTH EVERY DAY AS DIRECTED, THEN 1 TABLET EVERY OTHER DAY AS DIRECTED
     Route: 048

REACTIONS (4)
  - Seizure [Unknown]
  - Blood glucose increased [Unknown]
  - Peripheral swelling [Unknown]
  - Blood pressure increased [Unknown]
